FAERS Safety Report 9776539 (Version 1)
Quarter: 2013Q4

REPORT INFORMATION
  Report Type: Report from Study
  Country: NL (occurrence: NL)
  Receive Date: 20131220
  Receipt Date: 20131220
  Transmission Date: 20140711
  Serious: Yes (Other)
  Sender: FDA-Public Use
  Company Number: NL-ABBVIE-13P-114-1181371-00

PATIENT
  Age: 38 Year
  Sex: Female
  Weight: 115 kg

DRUGS (12)
  1. LUCRIN [Suspect]
     Indication: BREAST CANCER
     Route: 058
     Dates: start: 20081027
  2. FOLIC ACID [Concomitant]
     Indication: RHEUMATOID ARTHRITIS
     Route: 048
  3. METHOTREXATE [Concomitant]
     Indication: RHEUMATOID ARTHRITIS
     Route: 048
  4. METHOTREXATE [Concomitant]
     Route: 048
     Dates: start: 2008
  5. DOMPERIDON [Concomitant]
     Indication: PRODUCT USED FOR UNKNOWN INDICATION
     Route: 048
  6. TAMOXIFEN [Concomitant]
     Indication: BREAST CANCER FEMALE
     Route: 048
     Dates: start: 2006
  7. CITALOPRAM [Concomitant]
     Indication: DEPRESSION
     Route: 048
     Dates: start: 2006
  8. NEORAL [Concomitant]
     Indication: RHEUMATOID ARTHRITIS
     Route: 048
  9. NEORAL [Concomitant]
     Indication: RHEUMATOID ARTHRITIS
     Route: 048
     Dates: start: 2008
  10. HYDROCHLOROTHIAZIDE [Concomitant]
     Indication: OEDEMA
     Route: 048
     Dates: start: 2006
  11. LEFLUNOMIDE [Concomitant]
     Indication: RHEUMATOID ARTHRITIS
     Route: 048
     Dates: start: 2008
  12. METFORMIN [Concomitant]
     Indication: DIABETES MELLITUS
     Route: 048
     Dates: start: 201201

REACTIONS (2)
  - Oophorectomy [Unknown]
  - Polyp [Unknown]
